FAERS Safety Report 8861607 (Version 1)
Quarter: 2012Q4

REPORT INFORMATION
  Report Type: 
  Country: US (occurrence: US)
  Receive Date: 20121025
  Receipt Date: 20121025
  Transmission Date: 20130627
  Serious: No
  Sender: FDA-Public Use
  Company Number: US-AMGEN-USASP2012017813

PATIENT
  Sex: Female

DRUGS (11)
  1. ENBREL [Suspect]
     Indication: PRODUCT USED FOR UNKNOWN INDICATION
     Dosage: 50 mg, qwk
     Route: 058
  2. RAMIPRIL [Concomitant]
     Dosage: 10 mg, UNK
  3. TRIAMTEREEN/HYDROCHLOORTHIAZIDE A [Concomitant]
  4. PREDNISONE [Concomitant]
     Dosage: 1 mg, UNK
  5. TRAMADOL HCL [Concomitant]
     Dosage: 50 mg, UNK
  6. ATORVASTATIN [Concomitant]
     Dosage: 20 mg, UNK
  7. SERTRALINE [Concomitant]
     Dosage: 25 mg, UNK
  8. LEFLUNOMIDE [Concomitant]
     Dosage: 10 mg, UNK
  9. BACTRIM [Concomitant]
  10. ALREX                              /00595201/ [Concomitant]
     Dosage: 0.2 %, UNK
  11. LATANOPROST [Concomitant]
     Dosage: 0.005 %, UNK

REACTIONS (2)
  - Therapeutic response decreased [Unknown]
  - Rheumatoid arthritis [Unknown]
